FAERS Safety Report 9801198 (Version 2)
Quarter: 2014Q1

REPORT INFORMATION
  Report Type: Spontaneous
  Country: SE (occurrence: SE)
  Receive Date: 20140107
  Receipt Date: 20140314
  Transmission Date: 20141002
  Serious: Yes (Other)
  Sender: FDA-Public Use
  Company Number: SE-ASTRAZENECA-2013SE94250

PATIENT
  Age: 24 Year
  Sex: Female
  Weight: 62 kg

DRUGS (2)
  1. SEROQUEL [Suspect]
     Indication: BIPOLAR II DISORDER
     Route: 048
     Dates: start: 201211, end: 201302
  2. ERGENYL [Concomitant]
     Dates: start: 201211

REACTIONS (3)
  - Hypnagogic hallucination [Unknown]
  - Hypnopompic hallucination [Unknown]
  - Hallucination, visual [Unknown]
